FAERS Safety Report 17264963 (Version 1)
Quarter: 2020Q1

REPORT INFORMATION
  Report Type: Spontaneous
  Country: US (occurrence: US)
  Receive Date: 20200113
  Receipt Date: 20200113
  Transmission Date: 20200409
  Serious: No
  Sender: FDA-Public Use
  Company Number: NVSC2020US005545

PATIENT
  Sex: Male

DRUGS (1)
  1. MEKINIST [Suspect]
     Active Substance: TRAMETINIB DIMETHYL SULFOXIDE
     Indication: NEUROFIBROMATOSIS
     Dosage: 0.5 MG (TAKE 1 TABLET BY MOUTH DAILY ON AN EMPTY STOMACH 1 HOUR BEFORE OR 2 HOUR(S) AFTER EATING.TO
     Route: 048
     Dates: start: 201912

REACTIONS (3)
  - Diarrhoea [Not Recovered/Not Resolved]
  - Product dose omission [Not Recovered/Not Resolved]
  - Decreased appetite [Not Recovered/Not Resolved]
